FAERS Safety Report 8400191-1 (Version None)
Quarter: 2012Q2

REPORT INFORMATION
  Report Type: 
  Country: None (occurrence: None)
  Receive Date: 20120531
  Receipt Date: 20120524
  Transmission Date: 20120825
  Serious: Yes (Disabling)
  Sender: FDA-Public Use
  Company Number: ES-ABBOTT-12P-144-0939121-00

PATIENT
  Age: 45 Year
  Sex: Male
  Weight: 80.4 kg

DRUGS (1)
  1. HUMIRA [Suspect]
     Indication: PSORIASIS
     Route: 058
     Dates: start: 20101029

REACTIONS (3)
  - BACK PAIN [None]
  - SPONDYLOARTHROPATHY [None]
  - PSORIATIC ARTHROPATHY [None]
